FAERS Safety Report 23378041 (Version 3)
Quarter: 2024Q1

REPORT INFORMATION
  Report Type: Report from Study
  Country: US (occurrence: US)
  Receive Date: 20240108
  Receipt Date: 20240222
  Transmission Date: 20240409
  Serious: No
  Sender: FDA-Public Use
  Company Number: US-AstraZeneca-CH-00537916A

PATIENT
  Sex: Male
  Weight: 124 kg

DRUGS (1)
  1. SOLIRIS [Suspect]
     Active Substance: ECULIZUMAB
     Indication: Myasthenia gravis
     Dosage: UNK, 10MG/ML
     Route: 042

REACTIONS (2)
  - Somnolence [Recovered/Resolved]
  - Influenza [Recovered/Resolved]
